FAERS Safety Report 4714339-3 (Version None)
Quarter: 2005Q3

REPORT INFORMATION
  Report Type: 
  Country: None (occurrence: None)
  Receive Date: 20050713
  Receipt Date: 20050713
  Transmission Date: 20060218
  Serious: Yes (Hospitalization)
  Sender: FDA-Public Use
  Company Number: None

PATIENT
  Age: 57 Year
  Sex: Male
  Weight: 72.1219 kg

DRUGS (3)
  1. TAXOTERE [Suspect]
  2. CARBOPLATIN [Suspect]
  3. RADIATION [Concomitant]

REACTIONS (1)
  - RADIATION DYSPHAGIA [None]
